FAERS Safety Report 20777175 (Version 2)
Quarter: 2022Q2

REPORT INFORMATION
  Report Type: Spontaneous
  Country: US (occurrence: US)
  Receive Date: 20220503
  Receipt Date: 20220517
  Transmission Date: 20220720
  Serious: No
  Sender: FDA-Public Use
  Company Number: US-LUPIN PHARMACEUTICALS INC.-2022-06226

PATIENT
  Age: 82 Year
  Sex: Female
  Weight: 45.351 kg

DRUGS (3)
  1. BUDESONIDE [Suspect]
     Active Substance: BUDESONIDE
     Indication: Chronic obstructive pulmonary disease
     Dosage: 0.5 MG IN 2 ML SOLUTION, BID
     Route: 048
     Dates: start: 2022
  2. BUDESONIDE [Suspect]
     Active Substance: BUDESONIDE
     Indication: Asthma
  3. PROLIA [Concomitant]
     Active Substance: DENOSUMAB
     Indication: Osteoporosis
     Dosage: UNK (EVERY SIX MONTHS)
     Route: 065

REACTIONS (2)
  - Incorrect dose administered by product [Unknown]
  - No adverse event [Unknown]
